FAERS Safety Report 7845955-8 (Version None)
Quarter: 2011Q4

REPORT INFORMATION
  Report Type: 
  Country: None (occurrence: None)
  Receive Date: 20111025
  Receipt Date: 20111010
  Transmission Date: 20120403
  Serious: Yes (Other)
  Sender: FDA-Public Use
  Company Number: US-ARROW GEN-2011-17257

PATIENT

DRUGS (1)
  1. LAMOTRIGINE [Suspect]
     Indication: EPILEPSY
     Dosage: UNKNOWN
     Route: 065

REACTIONS (12)
  - BALANCE DISORDER [None]
  - GASTROINTESTINAL DISORDER [None]
  - SLEEP DISORDER [None]
  - MENTAL DISORDER [None]
  - HYPERSENSITIVITY [None]
  - HEADACHE [None]
  - UNEVALUABLE EVENT [None]
  - SOMNOLENCE [None]
  - DIZZINESS [None]
  - COGNITIVE DISORDER [None]
  - VISUAL IMPAIRMENT [None]
  - TREMOR [None]
